FAERS Safety Report 6172783-4 (Version None)
Quarter: 2009Q2

REPORT INFORMATION
  Report Type: 
  Country: None (occurrence: None)
  Receive Date: 20090428
  Receipt Date: 20090413
  Transmission Date: 20091009
  Serious: Yes (Hospitalization)
  Sender: FDA-Public Use
  Company Number: 2009S1006406

PATIENT
  Age: 53 Year
  Sex: Female

DRUGS (2)
  1. CARBOPLATIN [Suspect]
     Indication: OVARIAN CANCER
     Dosage: 700 MG; INTRAVENOUS
     Route: 042
     Dates: start: 20090326, end: 20090326
  2. PACLITAXEL [Suspect]
     Indication: OVARIAN CANCER
     Dosage: 280 MG; INTRAVENOUS
     Route: 042
     Dates: start: 20090326, end: 20090326

REACTIONS (11)
  - ASCITES [None]
  - BLOOD CHLORIDE DECREASED [None]
  - BLOOD CREATININE DECREASED [None]
  - BLOOD SODIUM DECREASED [None]
  - ELECTROLYTE IMBALANCE [None]
  - HYPOAESTHESIA ORAL [None]
  - NAUSEA [None]
  - OEDEMA [None]
  - OLIGURIA [None]
  - RENAL DISORDER [None]
  - URINE OUTPUT DECREASED [None]
